FAERS Safety Report 11079336 (Version 1)
Quarter: 2015Q2

REPORT INFORMATION
  Report Type: Spontaneous
  Country: FR (occurrence: FR)
  Receive Date: 20150430
  Receipt Date: 20150430
  Transmission Date: 20150821
  Serious: Yes (Hospitalization)
  Sender: FDA-Public Use
  Company Number: FR-ASTRAZENECA-2015SE39000

PATIENT
  Age: 24532 Day
  Sex: Female

DRUGS (4)
  1. IBUPROFENE [Suspect]
     Active Substance: IBUPROFEN
     Dosage: ACTAVIS 400 MG EVERY DAY
     Route: 048
     Dates: start: 20150302, end: 20150309
  2. AMOXICILLINE ACIDE CLAVULANIQUE [Suspect]
     Active Substance: AMOXICILLIN\CLAVULANIC ACID
     Dosage: 1 G + 125 MG, 2 DF DAILY, BIOGARAN
     Route: 048
     Dates: start: 20150228, end: 20150305
  3. CRESTOR [Suspect]
     Active Substance: ROSUVASTATIN CALCIUM
     Indication: DYSLIPIDAEMIA
     Route: 048
     Dates: start: 20150212, end: 20150316
  4. STRESAM [Suspect]
     Active Substance: ETIFOXINE
     Route: 048
     Dates: start: 20150302, end: 20150309

REACTIONS (2)
  - Vascular purpura [Recovered/Resolved]
  - Arthralgia [Recovered/Resolved]

NARRATIVE: CASE EVENT DATE: 20150316
